FAERS Safety Report 9675491 (Version 1)
Quarter: 2013Q4

REPORT INFORMATION
  Report Type: Spontaneous
  Country: SE (occurrence: SE)
  Receive Date: 20131107
  Receipt Date: 20131107
  Transmission Date: 20140711
  Serious: Yes (Other)
  Sender: FDA-Public Use
  Company Number: SE-UCBSA-101910

PATIENT
  Age: 73 Year
  Sex: Male

DRUGS (1)
  1. KEPPRA [Suspect]
     Dates: start: 201203, end: 201305

REACTIONS (2)
  - Depressed level of consciousness [Recovered/Resolved]
  - Fatigue [Recovered/Resolved]
